FAERS Safety Report 19234392 (Version 1)
Quarter: 2021Q2

REPORT INFORMATION
  Report Type: Spontaneous
  Country: US (occurrence: US)
  Receive Date: 20210508
  Receipt Date: 20210508
  Transmission Date: 20210717
  Serious: No
  Sender: FDA-Public Use
  Company Number: US-ASTRAZENECA-2021A333612

PATIENT
  Sex: Female
  Weight: 65.8 kg

DRUGS (9)
  1. ZINC. [Concomitant]
     Active Substance: ZINC
  2. TAGRISSO [Suspect]
     Active Substance: OSIMERTINIB
     Indication: LUNG NEOPLASM MALIGNANT
     Route: 048
     Dates: start: 202001
  3. VITAMIN D [Concomitant]
     Active Substance: VITAMIN D NOS
  4. HYDROCHLOROTHIAZIDE. [Concomitant]
     Active Substance: HYDROCHLOROTHIAZIDE
  5. TYLENOL [Concomitant]
     Active Substance: ACETAMINOPHEN
  6. VITAMIN B?1 [Concomitant]
     Active Substance: THIAMINE HYDROCHLORIDE
  7. OMEPRAZOLE. [Concomitant]
     Active Substance: OMEPRAZOLE
  8. EYE DROPS [Concomitant]
     Active Substance: UNSPECIFIED INGREDIENT
  9. FOLIC ACID. [Concomitant]
     Active Substance: FOLIC ACID

REACTIONS (4)
  - Nail growth abnormal [Unknown]
  - Dysgeusia [Unknown]
  - Multiple allergies [Unknown]
  - Dry eye [Unknown]
